FAERS Safety Report 9128332 (Version 1)
Quarter: 2013Q1

REPORT INFORMATION
  Report Type: Spontaneous
  Country: US (occurrence: US)
  Receive Date: 20130228
  Receipt Date: 20130228
  Transmission Date: 20140127
  Serious: Yes (Hospitalization)
  Sender: FDA-Public Use
  Company Number: US-GLAXOSMITHKLINE-A0810791A

PATIENT
  Age: 48 None
  Sex: Female

DRUGS (13)
  1. IMITREX [Suspect]
     Indication: OCCIPITAL NEURALGIA
     Dosage: 6MG UNKNOWN
     Route: 058
     Dates: start: 200705
  2. DEVICE [Suspect]
     Indication: PRODUCT USED FOR UNKNOWN INDICATION
  3. ZOFRAN [Suspect]
     Indication: PROPHYLAXIS OF NAUSEA AND VOMITING
     Route: 065
     Dates: start: 20081226
  4. BUTALBITAL [Concomitant]
  5. CYMBALTA [Concomitant]
  6. TRAZODONE [Concomitant]
  7. FORVIA [Concomitant]
  8. LOMOTIL [Concomitant]
  9. GABAPENTIN [Concomitant]
  10. PRILOSEC [Concomitant]
  11. FIORICET [Concomitant]
  12. FLEXERIL [Concomitant]
  13. MULTIVITAMIN [Concomitant]

REACTIONS (9)
  - Migraine [Unknown]
  - Injection site haemorrhage [Recovered/Resolved]
  - Injection site pain [Recovered/Resolved]
  - Drug ineffective [Unknown]
  - Colitis [Unknown]
  - Hepatitis [Unknown]
  - Facial pain [Unknown]
  - Protein deficiency [Unknown]
  - Product quality issue [Unknown]
